FAERS Safety Report 6102576-5 (Version None)
Quarter: 2009Q1

REPORT INFORMATION
  Report Type: 
  Country: None (occurrence: None)
  Receive Date: 20090304
  Receipt Date: 20080905
  Transmission Date: 20090719
  Serious: No
  Sender: FDA-Public Use
  Company Number: A0746123A

PATIENT
  Age: 78 Year
  Sex: Female

DRUGS (16)
  1. REQUIP [Suspect]
     Indication: RESTLESS LEGS SYNDROME
     Dosage: .5MG PER DAY
     Route: 048
     Dates: start: 20080401, end: 20080721
  2. ASPIRIN [Concomitant]
  3. PLAVIX [Concomitant]
  4. LOTREL [Concomitant]
  5. ZETIA [Concomitant]
  6. OMEGA OIL [Concomitant]
  7. METFORMIN [Concomitant]
  8. PLETAL [Concomitant]
  9. JANUVIA [Concomitant]
  10. METOPROLOL SUCCINATE [Concomitant]
  11. AMLODIPINE [Concomitant]
  12. OMEPRAZOLE [Concomitant]
  13. ANTARA (MICRONIZED) [Concomitant]
  14. CYMBALTA [Concomitant]
  15. TRAMADOL HCL [Concomitant]
  16. APRESOLINE [Concomitant]

REACTIONS (2)
  - ROAD TRAFFIC ACCIDENT [None]
  - SOMNOLENCE [None]
